FAERS Safety Report 16449696 (Version 1)
Quarter: 2019Q2

REPORT INFORMATION
  Report Type: Spontaneous
  Country: US (occurrence: US)
  Receive Date: 20190509
  Receipt Date: 20190509
  Transmission Date: 20190711
  Serious: Yes (Other)
  Sender: FDA-Public Use
  Company Number: None

PATIENT
  Age: 44 Year
  Sex: Male
  Weight: 88.5 kg

DRUGS (8)
  1. ALPRAZOLAM. [Concomitant]
     Active Substance: ALPRAZOLAM
  2. LORATADINE. [Concomitant]
     Active Substance: LORATADINE
  3. UREA CREAM [Concomitant]
     Active Substance: UREA
  4. NIVOLUMAB 240MG [Suspect]
     Active Substance: NIVOLUMAB
     Indication: GASTROINTESTINAL STROMAL TUMOUR
     Route: 042
     Dates: start: 20170213, end: 20170224
  5. ONDANSETRON [Concomitant]
     Active Substance: ONDANSETRON
  6. CELECOXIB. [Concomitant]
     Active Substance: CELECOXIB
  7. DOCUSATE [Concomitant]
     Active Substance: DOCUSATE
  8. ERGOCALCIFEROL. [Concomitant]
     Active Substance: ERGOCALCIFEROL

REACTIONS (2)
  - Vertebral lesion [None]
  - Myxoid liposarcoma [None]

NARRATIVE: CASE EVENT DATE: 20170306
